FAERS Safety Report 7946443-0 (Version None)
Quarter: 2011Q4

REPORT INFORMATION
  Report Type: 
  Country: None (occurrence: None)
  Receive Date: 20111129
  Receipt Date: 20111127
  Transmission Date: 20120403
  Serious: Yes (Other)
  Sender: FDA-Public Use
  Company Number: US-BAYER-2011-114041

PATIENT
  Age: 70 Year
  Sex: Female
  Weight: 61 kg

DRUGS (1)
  1. ALKA-SELTZER PLUS SEVERE SINUS CONGESTION + COUGH LIQUID GELS [Suspect]
     Indication: NASOPHARYNGITIS
     Dosage: 1 DF, PRN
     Route: 048
     Dates: start: 20111121, end: 20111123

REACTIONS (1)
  - CHOKING [None]
